FAERS Safety Report 4734504-9 (Version None)
Quarter: 2005Q3

REPORT INFORMATION
  Report Type: 
  Country: None (occurrence: None)
  Receive Date: 20050804
  Receipt Date: 20050803
  Transmission Date: 20060218
  Serious: Yes (Death, Hospitalization)
  Sender: FDA-Public Use
  Company Number: FR-SANOFI-SYNTHELABO-F01200501423

PATIENT
  Sex: Male

DRUGS (2)
  1. OXALIPLATIN [Suspect]
     Indication: COLORECTAL CANCER METASTATIC
     Route: 042
     Dates: start: 20040830, end: 20040830
  2. CAPECITABINE [Suspect]
     Dosage: 3660 MG FOR 14 DAYS EVERY 3 WEEKS
     Route: 048
     Dates: start: 20040830

REACTIONS (7)
  - DEHYDRATION [None]
  - DIARRHOEA [None]
  - ENTEROVESICAL FISTULA [None]
  - HYPOKALAEMIA [None]
  - HYPONATRAEMIA [None]
  - RENAL FAILURE [None]
  - SEPSIS [None]
